FAERS Safety Report 19786321 (Version 1)
Quarter: 2021Q3

REPORT INFORMATION
  Report Type: Spontaneous
  Country: US (occurrence: US)
  Receive Date: 20210903
  Receipt Date: 20210903
  Transmission Date: 20211014
  Serious: Yes (Hospitalization)
  Sender: FDA-Public Use
  Company Number: US-ORGANON-O2109USA000061

PATIENT
  Age: 24 Year
  Sex: Female
  Weight: 60.77 kg

DRUGS (1)
  1. NEXPLANON [Suspect]
     Active Substance: ETONOGESTREL
     Dosage: 1 IMPLANT, LEFT ARM
     Route: 059
     Dates: start: 20210716, end: 20210816

REACTIONS (2)
  - Complication of device removal [Recovered/Resolved]
  - Implant site cellulitis [Unknown]

NARRATIVE: CASE EVENT DATE: 20210813
